FAERS Safety Report 21787543 (Version 1)
Quarter: 2022Q4

REPORT INFORMATION
  Report Type: Spontaneous
  Country: DE (occurrence: IT)
  Receive Date: 20221228
  Receipt Date: 20221228
  Transmission Date: 20230113
  Serious: Yes (Hospitalization, Other)
  Sender: FDA-Public Use
  Company Number: DE-SAMSUNG BIOEPIS-SB-2022-33023

PATIENT
  Age: 42 Year
  Sex: Male

DRUGS (5)
  1. ADALIMUMAB [Suspect]
     Active Substance: ADALIMUMAB
     Indication: Psoriasis
     Dosage: PAST 7 YEARS
     Route: 065
     Dates: start: 2010, end: 2017
  2. ADALIMUMAB [Suspect]
     Active Substance: ADALIMUMAB
     Indication: Psoriatic arthropathy
  3. METHOTREXATE [Concomitant]
     Active Substance: METHOTREXATE
     Indication: Psoriasis
     Dosage: PAST 9 YEARS
     Route: 058
     Dates: start: 2009
  4. METHOTREXATE [Concomitant]
     Active Substance: METHOTREXATE
     Indication: Psoriatic arthropathy
  5. FUMARIC ACID [Concomitant]
     Active Substance: FUMARIC ACID
     Indication: Psoriasis
     Dosage: UNKNOWN
     Route: 065
     Dates: start: 2007

REACTIONS (3)
  - Pseudolymphoma [Recovered/Resolved]
  - Cutaneous leishmaniasis [Recovered/Resolved]
  - Obesity [Unknown]

NARRATIVE: CASE EVENT DATE: 20170101
